FAERS Safety Report 8314349-3 (Version None)
Quarter: 2012Q2

REPORT INFORMATION
  Report Type: 
  Country: None (occurrence: None)
  Receive Date: 20120426
  Receipt Date: 20080529
  Transmission Date: 20120825
  Serious: Yes (Other)
  Sender: FDA-Public Use
  Company Number: US-TEVA-US023693

PATIENT
  Age: 60 Year
  Sex: Female
  Weight: 77 kg

DRUGS (7)
  1. DETROL LA [Concomitant]
     Dosage: 8 MILLIGRAM;
     Route: 048
  2. PRILOSEC [Concomitant]
     Route: 048
  3. PROVIGIL [Suspect]
     Indication: FATIGUE
     Dosage: 400 MILLIGRAM;
     Route: 048
     Dates: start: 20080101, end: 20080528
  4. ABILIFY [Concomitant]
     Indication: BIPOLAR DISORDER
     Dosage: 10 MILLIGRAM;
     Route: 048
  5. CYMBALTA [Concomitant]
     Indication: BIPOLAR DISORDER
     Dosage: 60 OR 80 MG PER DAY
     Route: 048
  6. SINEMET [Concomitant]
     Indication: RESTLESS LEGS SYNDROME
     Dosage: 250 MILLIGRAM;
     Route: 048
  7. SEROQUEL [Concomitant]
     Indication: BIPOLAR DISORDER
     Dosage: 300 MILLIGRAM;
     Route: 048

REACTIONS (3)
  - HYPERSENSITIVITY [None]
  - ORAL DISORDER [None]
  - RASH ERYTHEMATOUS [None]
